FAERS Safety Report 9907144 (Version 2)
Quarter: 2014Q1

REPORT INFORMATION
  Report Type: Spontaneous
  Country: US (occurrence: US)
  Receive Date: 20140218
  Receipt Date: 20140218
  Transmission Date: 20141002
  Serious: Yes (Other)
  Sender: FDA-Public Use
  Company Number: US-BAUSCH-BL-2014-000801

PATIENT
  Age: 66 Year
  Sex: Female

DRUGS (2)
  1. PROLENSA (BROMFENAC OPHTHALMIC SOLUTION) 0.07% [Suspect]
     Indication: EYE DISORDER
     Route: 047
     Dates: start: 20140127, end: 20140128
  2. ZYLET (LOTEPREDNOL ETABONATE 0.5% AND TOBRAMYCIN 0.3% OPHTHALMIC SUSPE [Suspect]
     Indication: EYE DISORDER
     Route: 047
     Dates: start: 20140127, end: 20140127

REACTIONS (2)
  - Angioedema [Recovering/Resolving]
  - Vision blurred [Recovered/Resolved]
